FAERS Safety Report 9671454 (Version 2)
Quarter: 2014Q1

REPORT INFORMATION
  Report Type: Spontaneous
  Country: JP (occurrence: JP)
  Receive Date: 20131106
  Receipt Date: 20140303
  Transmission Date: 20141002
  Serious: Yes (Death, Other)
  Sender: FDA-Public Use
  Company Number: PHHY2013JP124838

PATIENT
  Age: 17 Year
  Sex: Female
  Weight: 48.5 kg

DRUGS (6)
  1. NEORAL [Suspect]
     Indication: EPSTEIN-BARR VIRUS INFECTION
     Dosage: 150 MG, PER DAY
  2. NEORAL [Suspect]
     Indication: HISTIOCYTOSIS HAEMATOPHAGIC
  3. METHYLPREDNISOLONE [Suspect]
     Indication: EPSTEIN-BARR VIRUS INFECTION
     Dosage: 1 G, PER DAY
     Route: 042
  4. METHYLPREDNISOLONE [Suspect]
     Indication: HISTIOCYTOSIS HAEMATOPHAGIC
  5. ETOPOSIDE [Suspect]
     Indication: EPSTEIN-BARR VIRUS INFECTION
     Dosage: 150 MG, PER DAY
  6. ETOPOSIDE [Suspect]
     Indication: HISTIOCYTOSIS HAEMATOPHAGIC

REACTIONS (7)
  - Epstein-Barr virus infection [Fatal]
  - Histiocytosis haematophagic [Fatal]
  - Subarachnoid haemorrhage [Unknown]
  - Cerebral haemorrhage [Unknown]
  - Respiratory arrest [Unknown]
  - Thrombocytopenia [Unknown]
  - Treatment failure [Unknown]
